FAERS Safety Report 20884177 (Version 1)
Quarter: 2022Q2

REPORT INFORMATION
  Report Type: Spontaneous
  Country: US (occurrence: US)
  Receive Date: 20220527
  Receipt Date: 20220527
  Transmission Date: 20220721
  Serious: No
  Sender: FDA-Public Use
  Company Number: US-BAYER-2022A067609

PATIENT

DRUGS (2)
  1. KERENDIA [Interacting]
     Active Substance: FINERENONE
  2. ALDACTONE [Concomitant]
     Active Substance: SPIRONOLACTONE

REACTIONS (1)
  - Labelled drug-drug interaction issue [None]
